FAERS Safety Report 14708217 (Version 9)
Quarter: 2019Q1

REPORT INFORMATION
  Report Type: Report from Study
  Country: CZ (occurrence: CZ)
  Receive Date: 20180403
  Receipt Date: 20190205
  Transmission Date: 20190417
  Serious: Yes (Hospitalization, Other)
  Sender: FDA-Public Use
  Company Number: PHHY2018CZ027779

PATIENT
  Age: 5 Year
  Sex: Female
  Weight: 39 kg

DRUGS (7)
  1. TRAMETINIB [Suspect]
     Active Substance: TRAMETINIB
     Dosage: UNK
     Route: 065
     Dates: start: 20180411, end: 20180710
  2. TRAMETINIB [Suspect]
     Active Substance: TRAMETINIB
     Indication: MALIGNANT MELANOMA
     Dosage: 0.7 MG, UNK
     Route: 048
     Dates: start: 20171212, end: 20180215
  3. TRAMETINIB [Suspect]
     Active Substance: TRAMETINIB
     Indication: ASTROCYTOMA MALIGNANT
     Dosage: UNK
     Route: 065
     Dates: start: 20180221, end: 20180319
  4. DABRAFENIB [Suspect]
     Active Substance: DABRAFENIB
     Indication: MALIGNANT MELANOMA
     Dosage: UNK, UNK
     Route: 065
     Dates: start: 20171212, end: 20180215
  5. TRAMETINIB [Suspect]
     Active Substance: TRAMETINIB
     Dosage: 1 MG (0.025 MG/KG), QD (SOLUTION)
     Route: 048
  6. DABRAFENIB [Suspect]
     Active Substance: DABRAFENIB
     Dosage: UNK
     Route: 065
     Dates: start: 20180221, end: 20180319
  7. DABRAFENIB [Suspect]
     Active Substance: DABRAFENIB
     Dosage: UNK
     Route: 065
     Dates: start: 20180411, end: 20180710

REACTIONS (26)
  - Pneumonia viral [Recovered/Resolved]
  - C-reactive protein increased [Unknown]
  - Staphylococcal infection [Unknown]
  - Hypothyroidism [Unknown]
  - Corona virus infection [Unknown]
  - Nail bed inflammation [Unknown]
  - Upper respiratory tract infection [Recovered/Resolved]
  - Aspartate aminotransferase increased [Unknown]
  - Laryngitis [Recovered/Resolved]
  - Cough [Not Recovered/Not Resolved]
  - Tonsillitis [Recovered/Resolved]
  - Urinary tract infection [Recovered/Resolved]
  - Ingrowing nail [Unknown]
  - Ingrowing nail [Recovered/Resolved]
  - Nail bed inflammation [Recovered/Resolved]
  - Paronychia [Unknown]
  - Alanine aminotransferase increased [Unknown]
  - Concomitant disease aggravated [Unknown]
  - Tonsillitis [Recovered/Resolved]
  - Hyperpyrexia [Recovered/Resolved]
  - Dental caries [Recovered/Resolved]
  - Anaemia [Unknown]
  - C-reactive protein increased [Recovered/Resolved]
  - Dyspnoea [Recovered/Resolved]
  - Lower respiratory tract infection [Recovered/Resolved]
  - Aphthous ulcer [Unknown]

NARRATIVE: CASE EVENT DATE: 20180130
